FAERS Safety Report 21638081 (Version 1)
Quarter: 2022Q4

REPORT INFORMATION
  Report Type: Report from Study
  Country: US (occurrence: US)
  Receive Date: 20221124
  Receipt Date: 20221124
  Transmission Date: 20230113
  Serious: No
  Sender: FDA-Public Use
  Company Number: US-ABBVIE-4179124

PATIENT
  Sex: Male

DRUGS (4)
  1. HUMIRA [Suspect]
     Active Substance: ADALIMUMAB
     Indication: Hidradenitis
     Dosage: CF
     Route: 058
  2. Pfizer/BioNTech covic-19 vaccine [Concomitant]
     Indication: COVID-19 immunisation
     Dosage: FIRST DOSE (FREQUENCY - ONE IN ONCE)
     Route: 030
  3. Pfizer/BioNTech covic-19 vaccine [Concomitant]
     Indication: COVID-19 immunisation
     Dosage: SECOND DOSE (FREQUENCY - ONE IN ONCE)
     Route: 030
  4. Pfizer/BioNTech covic-19 vaccine [Concomitant]
     Indication: COVID-19 immunisation
     Dosage: BOOSTER DOSE (FREQUENCY - ONE IN ONCE)
     Route: 030

REACTIONS (1)
  - Hidradenitis [Unknown]
